FAERS Safety Report 7045339-9 (Version None)
Quarter: 2010Q4

REPORT INFORMATION
  Report Type: 
  Country: None (occurrence: None)
  Receive Date: 20101014
  Receipt Date: 20100819
  Transmission Date: 20110411
  Serious: No
  Sender: FDA-Public Use
  Company Number: US-ALLERGAN-1010795US

PATIENT
  Sex: Female

DRUGS (1)
  1. LATISSE [Suspect]
     Indication: GROWTH OF EYELASHES
     Dosage: 1 GTT, QHS
     Route: 061
     Dates: start: 20100801, end: 20100801

REACTIONS (5)
  - ABNORMAL SENSATION IN EYE [None]
  - ERYTHEMA OF EYELID [None]
  - EYE PRURITUS [None]
  - EYELID IRRITATION [None]
  - EYELIDS PRURITUS [None]
